FAERS Safety Report 8089735-X (Version None)
Quarter: 2012Q1

REPORT INFORMATION
  Report Type: 
  Country: None (occurrence: None)
  Receive Date: 20120128
  Receipt Date: 20110630
  Transmission Date: 20120608
  Serious: No
  Sender: FDA-Public Use
  Company Number: US-ABBOTT-11P-163-0836188-00

PATIENT
  Sex: Male
  Weight: 95.34 kg

DRUGS (5)
  1. ANTIBIOTICS [Concomitant]
     Indication: CROHN'S DISEASE
     Route: 048
  2. HUMIRA [Suspect]
     Indication: ANKYLOSING SPONDYLITIS
     Route: 058
     Dates: start: 20110615, end: 20110615
  3. CREON [Concomitant]
     Indication: CROHN'S DISEASE
     Route: 048
  4. HUMIRA [Suspect]
     Indication: CROHN'S DISEASE
     Route: 058
     Dates: start: 20110607, end: 20110607
  5. HUMIRA [Suspect]
     Route: 058
     Dates: start: 20110628

REACTIONS (1)
  - HEADACHE [None]
